FAERS Safety Report 8509682-6 (Version None)
Quarter: 2012Q3

REPORT INFORMATION
  Report Type: 
  Country: None (occurrence: None)
  Receive Date: 20120713
  Receipt Date: 20120706
  Transmission Date: 20120928
  Serious: Yes (Hospitalization)
  Sender: FDA-Public Use
  Company Number: DE-JNJFOC-20120600381

PATIENT
  Sex: Female
  Weight: 75 kg

DRUGS (11)
  1. PALIPERIDONE [Suspect]
     Route: 030
     Dates: start: 20111031, end: 20111111
  2. ATOSIL [Concomitant]
     Route: 065
  3. ANTIDEPRESSANTS [Concomitant]
     Route: 065
  4. ABILIFY [Concomitant]
     Route: 065
  5. PALIPERIDONE [Suspect]
     Indication: HALLUCINATION
     Route: 030
     Dates: start: 20111024
  6. PALIPERIDONE [Suspect]
     Route: 030
     Dates: start: 20111031, end: 20111111
  7. LORAZEPAM [Concomitant]
     Route: 065
  8. COTRIM [Concomitant]
     Route: 065
  9. PALIPERIDONE [Suspect]
     Indication: SCHIZOAFFECTIVE DISORDER
     Route: 030
     Dates: start: 20111024
  10. NEXIUM [Concomitant]
     Route: 065
  11. METFORMIN HYDROCHLORIDE [Concomitant]
     Route: 065

REACTIONS (1)
  - SKIN REACTION [None]
